FAERS Safety Report 5834328-5 (Version None)
Quarter: 2008Q3

REPORT INFORMATION
  Report Type: 
  Country: None (occurrence: None)
  Receive Date: 20080805
  Receipt Date: 20080724
  Transmission Date: 20090109
  Serious: Yes (Other)
  Sender: FDA-Public Use
  Company Number: US-PFIZER INC-2008062626

PATIENT
  Age: 75 Year
  Sex: Female

DRUGS (7)
  1. REVATIO [Suspect]
     Indication: PULMONARY ARTERIAL HYPERTENSION
  2. ASPIRIN [Suspect]
  3. ALLOPURINOL [Suspect]
  4. GLIBENCLAMIDE TABLET [Suspect]
  5. LISINOPRIL [Suspect]
  6. GLUCOPHAGE [Suspect]
  7. PRILOSEC [Suspect]

REACTIONS (1)
  - DEAFNESS [None]
